FAERS Safety Report 22386835 (Version 1)
Quarter: 2023Q2

REPORT INFORMATION
  Report Type: Spontaneous
  Country: DE (occurrence: DE)
  Receive Date: 20230531
  Receipt Date: 20230531
  Transmission Date: 20230721
  Serious: Yes (Other)
  Sender: FDA-Public Use
  Company Number: DE-FFMEPROD-FMC20230400356

PATIENT
  Age: 61 Year
  Sex: Female
  Weight: 74.1 kg

DRUGS (9)
  1. MIRCERA [Suspect]
     Active Substance: METHOXY POLYETHYLENE GLYCOL-EPOETIN BETA
     Indication: Product used for unknown indication
     Dosage: 500 MG/ML ONCE PER MONTH
     Route: 065
  2. CHOLECALCIFEROL [Suspect]
     Active Substance: CHOLECALCIFEROL
     Indication: Product used for unknown indication
     Route: 048
  3. CALCIUM\DEXTROSE [Suspect]
     Active Substance: CALCIUM\DEXTROSE
     Indication: Peritoneal dialysis
     Dosage: 4 TIMES DAILY. SOLUTION FOR PERITONEAL DIALYSIS. (BALANCE 1.5 % GLUCOSE,1.25 MMOL/L CALCIUM).
     Route: 065
     Dates: start: 20161017
  4. LEVOTHYROXINE SODIUM [Suspect]
     Active Substance: LEVOTHYROXINE SODIUM
     Indication: Product used for unknown indication
     Dosage: 0.075 MILLIGRAM
     Route: 065
  5. PARICALCITOL [Suspect]
     Active Substance: PARICALCITOL
     Indication: Product used for unknown indication
     Dosage: 0.002 MILLIGRAM
     Route: 048
  6. ASCORBIC ACID\BIOTIN\CALCIUM PANTOTHENATE\CYANOCOBALAMIN\FOLIC ACID\NI [Suspect]
     Active Substance: ASCORBIC ACID\BIOTIN\CALCIUM PANTOTHENATE\CYANOCOBALAMIN\FOLIC ACID\NIACINAMIDE\PYRIDOXINE HYDROCHLO
     Indication: Product used for unknown indication
     Route: 065
  7. RAMIPRIL [Suspect]
     Active Substance: RAMIPRIL
     Indication: Product used for unknown indication
     Route: 065
  8. AZATHIOPRINE [Concomitant]
     Active Substance: AZATHIOPRINE
     Dosage: 50 MILLIGRAM, TWICE DAILY
  9. PANTOPRAZOLE SODIUM [Concomitant]
     Active Substance: PANTOPRAZOLE SODIUM

REACTIONS (2)
  - Peritonitis bacterial [Recovering/Resolving]
  - Product leakage [Unknown]

NARRATIVE: CASE EVENT DATE: 20230422
